FAERS Safety Report 4293405-3 (Version None)
Quarter: 2004Q1

REPORT INFORMATION
  Report Type: 
  Country: None (occurrence: None)
  Receive Date: 20040212
  Receipt Date: 20030620
  Transmission Date: 20041129
  Serious: No
  Sender: FDA-Public Use
  Company Number: US-GLAXOSMITHKLINE-A0413249A

PATIENT
  Age: 76 Year
  Sex: Female

DRUGS (7)
  1. PAXIL [Suspect]
     Dosage: 5MG PER DAY
     Route: 048
     Dates: start: 20030613
  2. STOOL SOFTENERS [Concomitant]
  3. SYNTHROID [Concomitant]
  4. VERAPAMIL [Concomitant]
  5. TRICOR [Concomitant]
  6. ACTONEL [Concomitant]
  7. ATIVAN [Concomitant]

REACTIONS (3)
  - CONSTIPATION [None]
  - DRY MOUTH [None]
  - MUSCLE TWITCHING [None]
